FAERS Safety Report 13585563 (Version 3)
Quarter: 2017Q3

REPORT INFORMATION
  Report Type: Spontaneous
  Country: US (occurrence: US)
  Receive Date: 20170526
  Receipt Date: 20170711
  Transmission Date: 20171127
  Serious: Yes (Other)
  Sender: FDA-Public Use
  Company Number: US-SHIRE-US201711310

PATIENT
  Age: 14 Year
  Sex: Male
  Weight: 40.82 kg

DRUGS (2)
  1. VYVANSE [Suspect]
     Active Substance: LISDEXAMFETAMINE DIMESYLATE
     Indication: ATTENTION DEFICIT/HYPERACTIVITY DISORDER
     Dosage: 70 MG, 1X/DAY:QD
     Route: 048
     Dates: start: 2010, end: 2014
  2. VYVANSE [Suspect]
     Active Substance: LISDEXAMFETAMINE DIMESYLATE
     Indication: POST-TRAUMATIC STRESS DISORDER
     Dosage: 70 MG, 1X/DAY:QD
     Route: 048
     Dates: start: 2014

REACTIONS (5)
  - Appetite disorder [Not Recovered/Not Resolved]
  - Glassy eyes [Unknown]
  - Drug ineffective [Recovered/Resolved]
  - Product quality issue [Recovered/Resolved]
  - Growth retardation [Not Recovered/Not Resolved]

NARRATIVE: CASE EVENT DATE: 2010
